FAERS Safety Report 4745022-6 (Version None)
Quarter: 2005Q3

REPORT INFORMATION
  Report Type: 
  Country: None (occurrence: None)
  Receive Date: 20050811
  Receipt Date: 20050801
  Transmission Date: 20060218
  Serious: Yes (Other)
  Sender: FDA-Public Use
  Company Number: CIP05001798

PATIENT
  Age: 32 Year
  Sex: Female

DRUGS (1)
  1. ASACOL [Suspect]
     Indication: COLITIS ULCERATIVE
     Dosage: 800 MG THREE TIMES DAILY, ORAL
     Route: 048
     Dates: start: 19990101

REACTIONS (2)
  - ABORTION SPONTANEOUS [None]
  - DRUG EXPOSURE DURING PREGNANCY [None]
